FAERS Safety Report 19881933 (Version 1)
Quarter: 2021Q3

REPORT INFORMATION
  Report Type: Spontaneous
  Country: PL (occurrence: PL)
  Receive Date: 20210924
  Receipt Date: 20210924
  Transmission Date: 20211014
  Serious: Yes (Other)
  Sender: FDA-Public Use
  Company Number: PL-WOODWARD-2021-PL-000074

PATIENT
  Age: 69 Year
  Sex: Male

DRUGS (2)
  1. DUTASTERIDE (UNSPECIFIED) [Suspect]
     Active Substance: DUTASTERIDE
     Indication: BENIGN PROSTATIC HYPERPLASIA
     Dosage: 0.5 MG, QD
     Route: 048
     Dates: start: 201802, end: 201803
  2. FINDARTS [Suspect]
     Active Substance: DUTASTERIDE
     Dosage: 0.5 MG, QD
     Route: 048
     Dates: start: 201710, end: 201802

REACTIONS (7)
  - Ejaculation disorder [Recovered/Resolved]
  - Arrhythmia [Recovered/Resolved]
  - Eczema [Recovered/Resolved]
  - Erectile dysfunction [Recovered/Resolved]
  - Abdominal pain upper [Recovered/Resolved]
  - Hepatic pain [Recovered/Resolved]
  - Pruritus [Recovered/Resolved]
